FAERS Safety Report 6982986-4 (Version None)
Quarter: 2010Q3

REPORT INFORMATION
  Report Type: 
  Country: None (occurrence: None)
  Receive Date: 20100914
  Receipt Date: 20100524
  Transmission Date: 20110219
  Serious: No
  Sender: FDA-Public Use
  Company Number: US-PFIZER INC-2010065779

PATIENT
  Sex: Female

DRUGS (3)
  1. LYRICA [Suspect]
     Indication: SCIATIC NERVE NEUROPATHY
     Dosage: 50 MG, 1X/DAY AT NIGHT
     Route: 048
     Dates: start: 20091201, end: 20100501
  2. ATENOLOL [Concomitant]
     Indication: HYPERTENSION
     Dosage: 25 MG DAILY
  3. AVALIDE [Concomitant]
     Indication: HYPERTENSION
     Dosage: 150 MG DAILY
     Route: 048

REACTIONS (1)
  - ALOPECIA [None]
